FAERS Safety Report 7904988-3 (Version None)
Quarter: 2011Q4

REPORT INFORMATION
  Report Type: 
  Country: None (occurrence: None)
  Receive Date: 20111109
  Receipt Date: 20111103
  Transmission Date: 20120403
  Serious: Yes (Other)
  Sender: FDA-Public Use
  Company Number: PHEH2011US008607

PATIENT
  Sex: Female
  Weight: 55.329 kg

DRUGS (6)
  1. COREG [Concomitant]
     Dosage: 12.5 MG, UNK
  2. MOBIC [Suspect]
     Dosage: 7.5 MG, UNK
  3. NEXIUM [Concomitant]
     Dosage: 40 MG, UNK
  4. CELEXA [Concomitant]
     Dosage: 40 MG, UNK
  5. DIOVAN [Concomitant]
     Dosage: 325 MG, UNK
  6. GILENYA [Suspect]
     Dosage: 0.5 MG, QD
     Route: 048

REACTIONS (2)
  - NEUROPATHY PERIPHERAL [None]
  - PETECHIAE [None]
